FAERS Safety Report 6731660-8 (Version None)
Quarter: 2010Q2

REPORT INFORMATION
  Report Type: 
  Country: None (occurrence: None)
  Receive Date: 20100519
  Receipt Date: 20100506
  Transmission Date: 20101027
  Serious: Yes (Hospitalization)
  Sender: FDA-Public Use
  Company Number: PHFR2010GB00518

PATIENT
  Sex: Female

DRUGS (1)
  1. CLOZARIL [Suspect]
     Indication: SCHIZOPHRENIA
     Dosage: 175 MG, UNK
     Route: 048
     Dates: start: 20100330

REACTIONS (5)
  - APPENDICECTOMY [None]
  - LAPAROTOMY [None]
  - MECHANICAL VENTILATION [None]
  - PNEUMONIA [None]
  - REMOVAL OF FOREIGN BODY [None]
